FAERS Safety Report 19679127 (Version 1)
Quarter: 2021Q3

REPORT INFORMATION
  Report Type: Report from Study
  Country: US (occurrence: US)
  Receive Date: 20210809
  Receipt Date: 20210809
  Transmission Date: 20211014
  Serious: Yes (Hospitalization)
  Sender: FDA-Public Use
  Company Number: US-EISAI MEDICAL RESEARCH-EC-2021-097495

PATIENT
  Age: 63 Year
  Sex: Female
  Weight: 60.7 kg

DRUGS (10)
  1. LENVIMA [Suspect]
     Active Substance: LENVATINIB
     Indication: METASTASES TO LYMPH NODES
     Route: 048
     Dates: start: 20210502, end: 20210723
  2. LENVIMA [Suspect]
     Active Substance: LENVATINIB
     Indication: UTERINE CANCER
     Route: 048
     Dates: start: 20210327, end: 202104
  3. SIMVASTATIN. [Concomitant]
     Active Substance: SIMVASTATIN
  4. TEGRETOL [Concomitant]
     Active Substance: CARBAMAZEPINE
  5. CARVEDILOL. [Concomitant]
     Active Substance: CARVEDILOL
  6. TYLENOL [Concomitant]
     Active Substance: ACETAMINOPHEN
  7. METFORMIN HCL [Concomitant]
     Active Substance: METFORMIN HYDROCHLORIDE
  8. ASPIRIN EC [Concomitant]
     Active Substance: ASPIRIN
  9. AMLODIPINE BESYLATE. [Concomitant]
     Active Substance: AMLODIPINE BESYLATE
  10. LISINOPRIL. [Concomitant]
     Active Substance: LISINOPRIL

REACTIONS (3)
  - Urinary tract infection [Unknown]
  - Heart rate abnormal [Unknown]
  - Toothache [Unknown]

NARRATIVE: CASE EVENT DATE: 20210425
